FAERS Safety Report 9826234 (Version 1)
Quarter: 2014Q1

REPORT INFORMATION
  Report Type: Spontaneous
  Country: FR (occurrence: FR)
  Receive Date: 20140117
  Receipt Date: 20140117
  Transmission Date: 20141002
  Serious: Yes (Hospitalization)
  Sender: FDA-Public Use
  Company Number: FR-009507513-1401FRA002577

PATIENT
  Age: 40 Year
  Sex: Male

DRUGS (3)
  1. TIENAM 500MG/500MG, POUDRE POUR PERFUSION [Suspect]
     Dosage: UNK
     Route: 042
     Dates: start: 20130816, end: 20131219
  2. AUGMENTIN [Suspect]
     Dosage: UNK
     Route: 048
     Dates: start: 20130816, end: 20131219
  3. TMC207 [Suspect]
     Dosage: UNK
     Route: 048
     Dates: start: 20130819, end: 20131113

REACTIONS (2)
  - Eosinophil percentage increased [Recovering/Resolving]
  - Pulmonary eosinophilia [Recovering/Resolving]
